FAERS Safety Report 6208303-5 (Version None)
Quarter: 2009Q2

REPORT INFORMATION
  Report Type: 
  Country: None (occurrence: None)
  Receive Date: 20090522
  Receipt Date: 20090328
  Transmission Date: 20091009
  Serious: Yes (Disabling, Other)
  Sender: FDA-Public Use
  Company Number: 2008AP001718

PATIENT
  Age: 69 Year
  Sex: Male

DRUGS (2)
  1. CITALOPRAM HYDROBROMIDE [Suspect]
     Indication: DEPRESSION
     Dosage: 40 MG;QD PO
     Route: 048
     Dates: start: 20070101, end: 20080101
  2. ROSUVASTATIN CALCIUM [Concomitant]

REACTIONS (9)
  - ARTERIOVENOUS MALFORMATION [None]
  - BACK INJURY [None]
  - BEDRIDDEN [None]
  - CEREBRAL ISCHAEMIA [None]
  - DIZZINESS [None]
  - FALL [None]
  - HEAD INJURY [None]
  - NIGHTMARE [None]
  - NUCLEAR MAGNETIC RESONANCE IMAGING BRAIN ABNORMAL [None]
